FAERS Safety Report 9845499 (Version 1)
Quarter: 2014Q1

REPORT INFORMATION
  Report Type: Spontaneous
  Country: JP (occurrence: None)
  Receive Date: 20140123
  Receipt Date: 20140123
  Transmission Date: 20141002
  Serious: Yes (Other)
  Sender: FDA-Public Use
  Company Number: JP-014411

PATIENT
  Sex: Male

DRUGS (2)
  1. GONAX [Suspect]
     Indication: PROSTATE CANCER
     Dosage: (80 MG 1X/MOUTTH SUBCUTANEOUS
     Route: 058
  2. GONAX [Suspect]
     Indication: PROSTATE CANCER
     Dosage: (80 MG 1X/MOUTTH SUBCUTANEOUS
     Route: 058

REACTIONS (4)
  - Intentional drug misuse [None]
  - Asthenia [None]
  - Hypopituitarism [None]
  - Endocrinopathy diencephalic [None]
